FAERS Safety Report 8228596-2 (Version None)
Quarter: 2012Q1

REPORT INFORMATION
  Report Type: 
  Country: None (occurrence: None)
  Receive Date: 20120322
  Receipt Date: 20110616
  Transmission Date: 20120608
  Serious: Yes (Other)
  Sender: FDA-Public Use
  Company Number: US-BRISTOL-MYERS SQUIBB COMPANY-15621907

PATIENT
  Age: 66 Year
  Sex: Male

DRUGS (2)
  1. ERBITUX [Suspect]
     Indication: HEAD AND NECK CANCER
     Dosage: 3RD AND 4TH INFUSION ON MAR2011
     Route: 042
     Dates: start: 20110203
  2. BENADRYL [Concomitant]
     Indication: PREMEDICATION
     Route: 042

REACTIONS (1)
  - HYPERSENSITIVITY [None]
